FAERS Safety Report 19260303 (Version 2)
Quarter: 2021Q2

REPORT INFORMATION
  Report Type: Spontaneous
  Country: JP (occurrence: JP)
  Receive Date: 20210514
  Receipt Date: 20210524
  Transmission Date: 20210717
  Serious: Yes (Other)
  Sender: FDA-Public Use
  Company Number: JP-GLAXOSMITHKLINE-JP2021JPN101652

PATIENT
  Age: 81 Year
  Sex: Male

DRUGS (5)
  1. ZOVIRAX [Suspect]
     Active Substance: ACYCLOVIR
     Indication: HERPES ZOSTER
     Dosage: 750 MG
     Route: 042
  2. ZOVIRAX [Suspect]
     Active Substance: ACYCLOVIR
     Indication: MENINGITIS VIRAL
     Dosage: 1650 MG
     Route: 042
  3. ZOVIRAX [Suspect]
     Active Substance: ACYCLOVIR
     Dosage: 1650 MG
     Route: 042
  4. ZOVIRAX [Suspect]
     Active Substance: ACYCLOVIR
     Dosage: 750 MG
     Route: 042
  5. CETUXIMAB. [Suspect]
     Active Substance: CETUXIMAB
     Indication: HYPOPHARYNGEAL CANCER STAGE IV
     Dosage: UNK, 8 COURSES
     Route: 065

REACTIONS (9)
  - Renal impairment [Unknown]
  - Nuchal rigidity [Unknown]
  - Pain in extremity [Not Recovered/Not Resolved]
  - Headache [Unknown]
  - Vomiting [Unknown]
  - Altered state of consciousness [Recovering/Resolving]
  - Pyrexia [Recovered/Resolved]
  - Meningitis viral [Unknown]
  - Paralysis [Not Recovered/Not Resolved]
